FAERS Safety Report 21855344 (Version 3)
Quarter: 2023Q2

REPORT INFORMATION
  Report Type: Spontaneous
  Country: US (occurrence: US)
  Receive Date: 20230112
  Receipt Date: 20230406
  Transmission Date: 20230722
  Serious: Yes (Other)
  Sender: FDA-Public Use
  Company Number: US-BRISTOL-MYERS SQUIBB COMPANY-2023-005310

PATIENT
  Age: 70 Year
  Sex: Male
  Weight: 109.32 kg

DRUGS (1)
  1. REVLIMID [Suspect]
     Active Substance: LENALIDOMIDE
     Indication: Plasma cell myeloma
     Dosage: D1-14 Q21 DAYS (DAY 1-14 EVERY 21 DAYS)
     Route: 048
     Dates: start: 20220913

REACTIONS (3)
  - Neuropathy peripheral [Recovering/Resolving]
  - Ageusia [Not Recovered/Not Resolved]
  - Iron deficiency anaemia [Unknown]
